FAERS Safety Report 25394000 (Version 1)
Quarter: 2025Q2

REPORT INFORMATION
  Report Type: Spontaneous
  Country: IT (occurrence: IT)
  Receive Date: 20250604
  Receipt Date: 20250604
  Transmission Date: 20250717
  Serious: Yes (Death, Other)
  Sender: CELLTRION
  Company Number: IT-AMGEN-ITASP2024240979

PATIENT

DRUGS (3)
  1. BEVACIZUMAB [Suspect]
     Active Substance: BEVACIZUMAB
     Indication: Ovarian clear cell carcinoma
     Route: 065
  2. PEMBROLIZUMAB [Concomitant]
     Active Substance: PEMBROLIZUMAB
     Indication: Ovarian clear cell carcinoma
  3. DOXORUBICIN [Concomitant]
     Active Substance: DOXORUBICIN
     Indication: Ovarian clear cell carcinoma

REACTIONS (6)
  - Death [Fatal]
  - Ovarian clear cell carcinoma [Unknown]
  - CSF protein increased [Unknown]
  - Pleocytosis [Unknown]
  - Ataxia [Unknown]
  - Dysarthria [Unknown]
